FAERS Safety Report 9371421 (Version 2)
Quarter: 2013Q4

REPORT INFORMATION
  Report Type: Spontaneous
  Country: US (occurrence: US)
  Receive Date: 20130627
  Receipt Date: 20131127
  Transmission Date: 20140711
  Serious: Yes (Hospitalization, Other)
  Sender: FDA-Public Use
  Company Number: US-INCYTE CORPORATION-2013IN001339

PATIENT
  Age: 51 Year
  Sex: Male
  Weight: 88.89 kg

DRUGS (1)
  1. JAKAFI [Suspect]
     Indication: MYELOFIBROSIS
     Dosage: 20 MG, BID
     Route: 048
     Dates: start: 20120706, end: 20121128

REACTIONS (6)
  - Bone marrow transplant [Recovered/Resolved]
  - Mucosal inflammation [Unknown]
  - Liver function test abnormal [Unknown]
  - Abdominal pain [Unknown]
  - Eye pain [Unknown]
  - Renal impairment [Unknown]
